FAERS Safety Report 8096393-7 (Version None)
Quarter: 2012Q1

REPORT INFORMATION
  Report Type: 
  Country: None (occurrence: None)
  Receive Date: 20120129
  Receipt Date: 20111110
  Transmission Date: 20120608
  Serious: No
  Sender: FDA-Public Use
  Company Number: US-ABBOTT-11P-163-0872812-00

PATIENT
  Sex: Male
  Weight: 81.72 kg

DRUGS (8)
  1. KERLONE [Concomitant]
     Indication: HYPERTENSION
  2. UNNAMED MEDICATION [Concomitant]
     Indication: PROSTATIC DISORDER
  3. MULTI-VITAMIN [Concomitant]
     Indication: VITAMIN SUPPLEMENTATION
  4. VITAMIN-MINERAL COMPOUND TAB [Concomitant]
     Indication: VITAMIN SUPPLEMENTATION
  5. HUMIRA [Suspect]
     Indication: POLYMYALGIA RHEUMATICA
     Dates: start: 20110201
  6. VITAMIN-MINERAL COMPOUND TAB [Concomitant]
     Indication: EYE DISORDER
  7. ASPIRIN [Concomitant]
     Indication: PRODUCT USED FOR UNKNOWN INDICATION
  8. ZOCOR [Concomitant]
     Indication: BLOOD CHOLESTEROL INCREASED

REACTIONS (6)
  - DYSPHONIA [None]
  - OROPHARYNGEAL PAIN [None]
  - HEADACHE [None]
  - OFF LABEL USE [None]
  - RHINORRHOEA [None]
  - SINUS CONGESTION [None]
